FAERS Safety Report 10057993 (Version 1)
Quarter: 2014Q2

REPORT INFORMATION
  Report Type: Spontaneous
  Country: US (occurrence: None)
  Receive Date: 20140403
  Receipt Date: 20140403
  Transmission Date: 20141212
  Serious: Yes (Other)
  Sender: FDA-Public Use
  Company Number: None

PATIENT
  Age: 77 Year
  Sex: Male
  Weight: 95.26 kg

DRUGS (13)
  1. VIGAMOX [Suspect]
     Indication: CONJUNCTIVITIS
     Dosage: 0.5 %, 3 ML, 3X/DAY, EYE DROP
     Dates: start: 20140304, end: 20140304
  2. VIGAMOX [Suspect]
     Indication: INFECTION
     Dosage: 0.5 %, 3 ML, 3X/DAY, EYE DROP
     Dates: start: 20140304, end: 20140304
  3. PLAVIX [Concomitant]
  4. CELEBREX [Concomitant]
  5. SIMVASTATIN [Concomitant]
  6. LUNESTA [Concomitant]
  7. PRILOSEC [Concomitant]
  8. DILTIAZEM [Concomitant]
  9. CYTOTEC [Concomitant]
  10. IMIPRAMINE [Concomitant]
  11. OXYCODONE [Concomitant]
  12. TAMSULASIN [Concomitant]
  13. VITAMIN D [Concomitant]

REACTIONS (2)
  - Eye pruritus [None]
  - Eye irritation [None]
